FAERS Safety Report 23822261 (Version 4)
Quarter: 2024Q2

REPORT INFORMATION
  Report Type: Spontaneous
  Country: US (occurrence: US)
  Receive Date: 20240506
  Receipt Date: 20240620
  Transmission Date: 20240716
  Serious: No
  Sender: FDA-Public Use
  Company Number: US-PFIZER INC-202400098615

PATIENT
  Sex: Female

DRUGS (1)
  1. PREMARIN [Suspect]
     Active Substance: ESTROGENS, CONJUGATED
     Dosage: UNK

REACTIONS (2)
  - Drug ineffective [Unknown]
  - Product quality issue [Unknown]

NARRATIVE: CASE EVENT DATE: 20240301
